FAERS Safety Report 23228193 (Version 4)
Quarter: 2023Q4

REPORT INFORMATION
  Report Type: Other
  Country: CA (occurrence: None)
  Receive Date: 20231125
  Receipt Date: 20231215
  Transmission Date: 20240110
  Serious: No
  Sender: FDA-Public Use
  Company Number: CA-ROCHE-2950911

PATIENT
  Age: 33 Year
  Sex: Male

DRUGS (3)
  1. OCREVUS [Suspect]
     Active Substance: OCRELIZUMAB
     Indication: Relapsing-remitting multiple sclerosis
     Dosage: 300 MG AT DAY 0 AND 14, THEN 600 MG EVERY 6 MONTH
     Route: 042
     Dates: start: 20211027
  2. OCREVUS [Suspect]
     Active Substance: OCRELIZUMAB
     Dosage: 300 MG AT DAY 0 AND 14, THEN 600 MG EVERY 6 MONTH
     Route: 042
  3. CANNABIS SATIVA SUBSP. INDICA TOP [Concomitant]
     Active Substance: CANNABIS SATIVA SUBSP. INDICA TOP

REACTIONS (6)
  - Multiple sclerosis [Not Recovered/Not Resolved]
  - Multiple sclerosis [Unknown]
  - Decubitus ulcer [Recovering/Resolving]
  - Infusion related reaction [Recovering/Resolving]
  - Muscular weakness [Not Recovered/Not Resolved]
  - Influenza [Recovered/Resolved]

NARRATIVE: CASE EVENT DATE: 20211027
